FAERS Safety Report 23942697 (Version 2)
Quarter: 2024Q3

REPORT INFORMATION
  Report Type: Spontaneous
  Country: AT (occurrence: AT)
  Receive Date: 20240605
  Receipt Date: 20240715
  Transmission Date: 20241016
  Serious: Yes (Other)
  Sender: TAKEDA
  Company Number: AT-PROTHYA BIOSOLUTIONS-PR2024AT003353

PATIENT
  Age: 32 Year
  Sex: Male

DRUGS (1)
  1. HUMAN IMMUNOGLOBULIN G [Suspect]
     Active Substance: HUMAN IMMUNOGLOBULIN G
     Indication: Guillain-Barre syndrome
     Dosage: UNK
     Route: 042

REACTIONS (3)
  - Therapeutic product effect incomplete [Unknown]
  - Nosocomial infection [Recovered/Resolved]
  - Drug ineffective [Unknown]
